FAERS Safety Report 7042590-9 (Version None)
Quarter: 2010Q4

REPORT INFORMATION
  Report Type: 
  Country: None (occurrence: None)
  Receive Date: 20101013
  Receipt Date: 20101006
  Transmission Date: 20110411
  Serious: Yes (Hospitalization)
  Sender: FDA-Public Use
  Company Number: FR-ABBOTT-10P-056-0676344-00

PATIENT
  Age: 65 Year
  Sex: Female

DRUGS (12)
  1. DEPAKENE [Suspect]
     Indication: PRODUCT USED FOR UNKNOWN INDICATION
     Dosage: DAILY
     Route: 048
     Dates: start: 20100501
  2. DITROPAN [Concomitant]
     Indication: PRODUCT USED FOR UNKNOWN INDICATION
  3. EQUANIL [Concomitant]
     Indication: PRODUCT USED FOR UNKNOWN INDICATION
  4. ESPERAL [Concomitant]
     Indication: PRODUCT USED FOR UNKNOWN INDICATION
  5. TIAPRIDE [Concomitant]
     Indication: PRODUCT USED FOR UNKNOWN INDICATION
     Dates: start: 20100501
  6. CETORNAN [Concomitant]
     Indication: PRODUCT USED FOR UNKNOWN INDICATION
  7. ZOPICLONE [Concomitant]
     Indication: PRODUCT USED FOR UNKNOWN INDICATION
  8. CITALOPRAM HYDROBROMIDE [Concomitant]
     Indication: PRODUCT USED FOR UNKNOWN INDICATION
  9. PROPRANOLOL [Concomitant]
     Indication: PRODUCT USED FOR UNKNOWN INDICATION
  10. VITAMINE B1 B6 [Concomitant]
     Indication: PRODUCT USED FOR UNKNOWN INDICATION
  11. LOXEN [Concomitant]
     Indication: PRODUCT USED FOR UNKNOWN INDICATION
  12. ARCALION [Concomitant]
     Indication: PRODUCT USED FOR UNKNOWN INDICATION

REACTIONS (5)
  - COGNITIVE DISORDER [None]
  - DEHYDRATION [None]
  - PYREXIA [None]
  - SOMNOLENCE [None]
  - URINARY INCONTINENCE [None]
